FAERS Safety Report 18151816 (Version 1)
Quarter: 2020Q3

REPORT INFORMATION
  Report Type: Spontaneous
  Country: TR (occurrence: TR)
  Receive Date: 20200814
  Receipt Date: 20200814
  Transmission Date: 20201103
  Serious: Yes (Other)
  Sender: FDA-Public Use
  Company Number: TR-GLAXOSMITHKLINE-TR2020GSK158014

PATIENT
  Age: 42 Year
  Sex: Female

DRUGS (1)
  1. DICLOFENAC [Suspect]
     Active Substance: DICLOFENAC
     Indication: HEADACHE
     Dosage: UNK
     Route: 042

REACTIONS (7)
  - Drug abuse [Unknown]
  - Product administration error [Unknown]
  - Skin ulcer [Unknown]
  - Administration site ulcer [Unknown]
  - Administration site atrophy [Unknown]
  - Administration site scar [Unknown]
  - Administration site discolouration [Unknown]
